FAERS Safety Report 19402795 (Version 1)
Quarter: 2021Q2

REPORT INFORMATION
  Report Type: Spontaneous
  Country: US (occurrence: US)
  Receive Date: 20210608
  Receipt Date: 20210608
  Transmission Date: 20210717
  Serious: No
  Sender: FDA-Public Use
  Company Number: None

PATIENT
  Sex: Female
  Weight: 100 kg

DRUGS (17)
  1. TIMONOL [Concomitant]
  2. SYSTANE (HYPROMELLOSE 2910 (4000 MPA.S)) [Concomitant]
     Active Substance: HYPROMELLOSE 2910 (4000 MPA.S)
  3. LUTEIN [Concomitant]
     Active Substance: LUTEIN
  4. CIMZIA [Suspect]
     Active Substance: CERTOLIZUMAB PEGOL
  5. REG, BLINK [Concomitant]
  6. LATANOPROST. [Suspect]
     Active Substance: LATANOPROST
  7. GEL BLINK [Concomitant]
  8. TRAVATAN [Concomitant]
     Active Substance: TRAVOPROST
  9. CALCIUM + VID D [Concomitant]
  10. VITAMIN C [Concomitant]
     Active Substance: ASCORBIC ACID
  11. GENERIC TYLENOL [Concomitant]
  12. MONTELUCAST [Concomitant]
     Active Substance: MONTELUKAST SODIUM
  13. PROBIOTICS ACIDOPHILUS [Concomitant]
  14. BACLOFEN. [Concomitant]
     Active Substance: BACLOFEN
  15. AZELASTINE HCL 0.05% [Concomitant]
  16. RESTASIS [Concomitant]
     Active Substance: CYCLOSPORINE
  17. BILBERRY [Concomitant]
     Active Substance: BILBERRY

REACTIONS (9)
  - Pain in extremity [None]
  - Burning sensation [None]
  - Eye irritation [None]
  - Dyspnoea [None]
  - Ear pruritus [None]
  - Product substitution issue [None]
  - Eye pruritus [None]
  - Ear discomfort [None]
  - Eye swelling [None]
